FAERS Safety Report 10639774 (Version 1)
Quarter: 2014Q4

REPORT INFORMATION
  Report Type: Spontaneous
  Country: US (occurrence: None)
  Receive Date: 20141205
  Receipt Date: 20141205
  Transmission Date: 20150529
  Serious: No
  Sender: FDA-Public Use
  Company Number: None

PATIENT
  Age: 58 Year
  Sex: Male
  Weight: 79.38 kg

DRUGS (2)
  1. LIOTHYRONINE SODIUM. [Suspect]
     Active Substance: LIOTHYRONINE SODIUM
     Indication: HYPOTHYROIDISM
     Dosage: 3 X 5MCG/DAY, ONCE DAILY, TAKEN BY MOUTH
     Route: 048
     Dates: start: 20140601, end: 20141001
  2. LIOTHYRONINE SODIUM. [Suspect]
     Active Substance: LIOTHYRONINE SODIUM
     Indication: AUTOIMMUNE THYROIDITIS
     Dosage: 3 X 5MCG/DAY, ONCE DAILY, TAKEN BY MOUTH
     Route: 048
     Dates: start: 20140601, end: 20141001

REACTIONS (4)
  - Product quality issue [None]
  - Condition aggravated [None]
  - Product substitution issue [None]
  - Hypothyroidism [None]

NARRATIVE: CASE EVENT DATE: 20141001
